FAERS Safety Report 4351508-9 (Version None)
Quarter: 2004Q2

REPORT INFORMATION
  Report Type: 
  Country: None (occurrence: None)
  Receive Date: 20040428
  Receipt Date: 20040412
  Transmission Date: 20050107
  Serious: Yes (Other)
  Sender: FDA-Public Use
  Company Number: USA040155998

PATIENT
  Age: 51 Year
  Sex: Female

DRUGS (4)
  1. FORTEO [Suspect]
     Indication: OSTEOPOROSIS
     Dosage: 20 UG/DAY
     Dates: start: 20031101
  2. CALCIUM [Concomitant]
  3. PROVERA [Concomitant]
  4. PREMARIN [Concomitant]

REACTIONS (6)
  - BLOOD POTASSIUM INCREASED [None]
  - FLUID RETENTION [None]
  - FOOT FRACTURE [None]
  - HYPERCALCAEMIA [None]
  - STRESS FRACTURE [None]
  - TACHYCARDIA [None]
